FAERS Safety Report 16295321 (Version 2)
Quarter: 2019Q2

REPORT INFORMATION
  Report Type: Spontaneous
  Country: JP (occurrence: JP)
  Receive Date: 20190509
  Receipt Date: 20190616
  Transmission Date: 20190711
  Serious: Yes (Other)
  Sender: FDA-Public Use
  Company Number: JP-AMGEN-JPNSP2019074362

PATIENT

DRUGS (2)
  1. IRINOTECAN HYDROCHLORIDE. [Suspect]
     Active Substance: IRINOTECAN HYDROCHLORIDE
     Indication: COLON CANCER
     Dosage: UNK
     Route: 041
     Dates: start: 201902
  2. VECTIBIX [Suspect]
     Active Substance: PANITUMUMAB
     Indication: COLON CANCER
     Dosage: 6 MILLIGRAM/KILOGRAM, Q2WK
     Route: 041
     Dates: start: 201902

REACTIONS (1)
  - Cytopenia [Recovered/Resolved]

NARRATIVE: CASE EVENT DATE: 201903
